FAERS Safety Report 9904601 (Version 1)
Quarter: 2014Q1

REPORT INFORMATION
  Report Type: Spontaneous
  Country: CA (occurrence: CA)
  Receive Date: 20140218
  Receipt Date: 20140218
  Transmission Date: 20141002
  Serious: Yes (Other)
  Sender: FDA-Public Use
  Company Number: CA-ASTRAZENECA-2014SE10132

PATIENT
  Age: 81 Year
  Sex: Male
  Weight: 75 kg

DRUGS (17)
  1. BRILINTA [Suspect]
     Route: 048
  2. BRILINTA [Suspect]
     Route: 048
  3. ASA [Suspect]
     Route: 048
  4. AMLODIPINE [Concomitant]
  5. ATORVASTATIN CALCIUM [Concomitant]
  6. BISOPROLOL [Concomitant]
  7. CLOPIDOGREL [Concomitant]
  8. FUROSEMIDE [Concomitant]
  9. GLICLAZIDE MR [Concomitant]
  10. HEPARIN SODIUM [Concomitant]
  11. HYDROMORPHONE [Concomitant]
  12. LATANOPROST [Concomitant]
     Route: 047
  13. LEVOFLOXACIN [Concomitant]
  14. NICOTINE [Concomitant]
  15. PANTOPRAZOLE [Concomitant]
  16. PERINDOPRIL [Concomitant]
  17. SPIRIVA [Concomitant]

REACTIONS (6)
  - Asthenia [Unknown]
  - Fall [Unknown]
  - Haemoglobin decreased [Unknown]
  - Dizziness [Unknown]
  - Melaena [Unknown]
  - Epistaxis [Unknown]
